FAERS Safety Report 6326730-2 (Version None)
Quarter: 2009Q3

REPORT INFORMATION
  Report Type: 
  Country: None (occurrence: None)
  Receive Date: 20090825
  Receipt Date: 20090820
  Transmission Date: 20100115
  Serious: Yes (Life-Threatening, Other)
  Sender: FDA-Public Use
  Company Number: PHEH2009US09659

PATIENT
  Sex: Female

DRUGS (2)
  1. TRILEPTAL [Suspect]
     Indication: CONVULSION
  2. TYLENOL (CAPLET) [Concomitant]

REACTIONS (4)
  - CONVULSION [None]
  - MOOD ALTERED [None]
  - STRESS [None]
  - SUICIDAL IDEATION [None]
